FAERS Safety Report 4662015-8 (Version None)
Quarter: 2005Q2

REPORT INFORMATION
  Report Type: 
  Country: None (occurrence: None)
  Receive Date: 20050512
  Receipt Date: 20050429
  Transmission Date: 20051028
  Serious: Yes (Hospitalization, Other)
  Sender: FDA-Public Use
  Company Number: HQWYE886208MAR05

PATIENT
  Age: 49 Year
  Sex: Female
  Weight: 54.48 kg

DRUGS (3)
  1. PROTONIX [Suspect]
     Indication: GASTROOESOPHAGEAL REFLUX DISEASE
     Dosage: 40 MG 2X PER 1 DAY, ORAL
     Route: 048
     Dates: start: 20041123
  2. EFFEXOR XR (VENLAFAXINE HYDROCHLORIDE0 [Concomitant]
  3. KLONOPIN [Concomitant]

REACTIONS (18)
  - AMNESIA [None]
  - AORTIC CALCIFICATION [None]
  - AORTIC DISSECTION [None]
  - ATHEROSCLEROSIS [None]
  - CERVICAL SPINAL STENOSIS [None]
  - DELIRIUM [None]
  - DISORIENTATION [None]
  - FALL [None]
  - HAEMANGIOMA OF LIVER [None]
  - HALLUCINATION [None]
  - HEPATIC CYST [None]
  - INJURY [None]
  - INTRA-ABDOMINAL HAEMORRHAGE [None]
  - NECK PAIN [None]
  - RIB FRACTURE [None]
  - ROAD TRAFFIC ACCIDENT [None]
  - SPINAL DISORDER [None]
  - THYROID NEOPLASM [None]
